FAERS Safety Report 17568462 (Version 1)
Quarter: 2020Q1

REPORT INFORMATION
  Report Type: Report from Study
  Country: SI (occurrence: SI)
  Receive Date: 20200320
  Receipt Date: 20200320
  Transmission Date: 20200409
  Serious: Yes (Death)
  Sender: FDA-Public Use
  Company Number: SI-B.I. PHARMACEUTICALS,INC./RIDGEFIELD-2020-BI-015640

PATIENT
  Age: 87 Year
  Sex: Female

DRUGS (2)
  1. PRAXBIND [Suspect]
     Active Substance: IDARUCIZUMAB
     Indication: PROCOAGULANT THERAPY
  2. PRAXBIND [Suspect]
     Active Substance: IDARUCIZUMAB
     Indication: SPONTANEOUS HAEMORRHAGE
     Route: 042

REACTIONS (1)
  - Subdural haematoma [Fatal]
